FAERS Safety Report 14366630 (Version 1)
Quarter: 2018Q1

REPORT INFORMATION
  Report Type: Spontaneous
  Country: AU (occurrence: AU)
  Receive Date: 20180109
  Receipt Date: 20180109
  Transmission Date: 20180509
  Serious: Yes (Hospitalization)
  Sender: FDA-Public Use
  Company Number: AU-ACTELION-A-CH2018-165228

PATIENT
  Age: 58 Year
  Sex: Female

DRUGS (3)
  1. OPSUMIT [Suspect]
     Active Substance: MACITENTAN
     Indication: SYSTEMIC SCLERODERMA
     Dosage: 10 MG, OD
     Route: 048
     Dates: start: 20151020
  2. SILDENAFIL. [Suspect]
     Active Substance: SILDENAFIL
     Indication: SYSTEMIC SCLERODERMA
     Dosage: 25 MG, TID
     Route: 048
     Dates: start: 20151029
  3. VELETRI [Suspect]
     Active Substance: EPOPROSTENOL
     Indication: SYSTEMIC SCLERODERMA
     Dosage: 1.5 MG, UNK
     Route: 042
     Dates: start: 20161215

REACTIONS (1)
  - Cough [Unknown]
